FAERS Safety Report 9536727 (Version 2)
Quarter: 2013Q4

REPORT INFORMATION
  Report Type: Spontaneous
  Country: FR (occurrence: FR)
  Receive Date: 20130919
  Receipt Date: 20131206
  Transmission Date: 20140711
  Serious: Yes (Hospitalization, Other)
  Sender: FDA-Public Use
  Company Number: FR-PFIZER INC-2013266196

PATIENT
  Age: 79 Year
  Sex: Male

DRUGS (5)
  1. LYRICA [Suspect]
     Indication: PAIN
     Dosage: UNK
     Route: 048
     Dates: end: 20130829
  2. CLAMOXYL [Suspect]
     Indication: INTERVERTEBRAL DISCITIS
     Dosage: 8 G, 1X/DAY
     Route: 042
     Dates: start: 20130811, end: 20130819
  3. AMOXYCILLIN CLAVULANIC ACID SANDOZ [Suspect]
     Indication: CAMPYLOBACTER SEPSIS
     Dosage: UNK
     Dates: start: 20130809, end: 20130811
  4. TAZOCILLINE [Concomitant]
     Route: 051
  5. VANCOMYCIN [Concomitant]
     Route: 051

REACTIONS (13)
  - Agranulocytosis [Recovered/Resolved]
  - Toxicity to various agents [Recovering/Resolving]
  - Neoplasm malignant [Unknown]
  - Dysphagia [Unknown]
  - Campylobacter sepsis [Recovered/Resolved]
  - Cachexia [Unknown]
  - Intervertebral discitis [Unknown]
  - Pyrexia [Unknown]
  - Chills [Unknown]
  - Weight decreased [Unknown]
  - Asthenia [Unknown]
  - Weight increased [Unknown]
  - Dysuria [Unknown]
